FAERS Safety Report 5105579-2 (Version None)
Quarter: 2006Q3

REPORT INFORMATION
  Report Type: 
  Country: None (occurrence: None)
  Receive Date: 20060915
  Receipt Date: 20060908
  Transmission Date: 20061208
  Serious: Yes (Hospitalization)
  Sender: FDA-Public Use
  Company Number: US-JNJFOC-20050702932

PATIENT
  Sex: Female

DRUGS (4)
  1. REMINYL [Suspect]
     Route: 048
  2. REMINYL [Suspect]
     Indication: DEMENTIA
     Route: 048
  3. REMINYL [Suspect]
     Indication: AMNESIA
     Route: 048
  4. MULTIPLE MEDICATIONS [Concomitant]

REACTIONS (9)
  - ANOREXIA [None]
  - APHASIA [None]
  - ARRHYTHMIA [None]
  - CEREBROVASCULAR ACCIDENT [None]
  - COMA [None]
  - CONFUSIONAL STATE [None]
  - DYSPHAGIA [None]
  - TREMOR [None]
  - WEIGHT DECREASED [None]
